FAERS Safety Report 6292454-3 (Version None)
Quarter: 2009Q3

REPORT INFORMATION
  Report Type: 
  Country: None (occurrence: None)
  Receive Date: 20090731
  Receipt Date: 20090722
  Transmission Date: 20100115
  Serious: Yes (Hospitalization, Other)
  Sender: FDA-Public Use
  Company Number: DE-PFIZER INC-2009230016

PATIENT
  Age: 73 Year

DRUGS (2)
  1. SUTENT [Suspect]
     Indication: METASTATIC RENAL CELL CARCINOMA
     Dosage: 50 MG, 1X/DAY
     Route: 048
     Dates: start: 20090518
  2. DIOVAN HCT [Concomitant]
     Indication: HYPERTENSION
     Dosage: 1 DF, 1X/DAY
     Route: 048

REACTIONS (15)
  - AGEUSIA [None]
  - ANAEMIA [None]
  - BILE DUCT STONE [None]
  - CHOLANGITIS [None]
  - DECREASED APPETITE [None]
  - DERMATITIS ALLERGIC [None]
  - DISEASE PROGRESSION [None]
  - HEPATITIS CHOLESTATIC [None]
  - LEUKOPENIA [None]
  - METASTATIC RENAL CELL CARCINOMA [None]
  - PALMAR-PLANTAR ERYTHRODYSAESTHESIA SYNDROME [None]
  - STOMATITIS [None]
  - SYSTEMIC INFLAMMATORY RESPONSE SYNDROME [None]
  - THROMBOCYTOPENIA [None]
  - WEIGHT DECREASED [None]
